FAERS Safety Report 5494803-2 (Version None)
Quarter: 2007Q4

REPORT INFORMATION
  Report Type: 
  Country: None (occurrence: None)
  Receive Date: 20071024
  Receipt Date: 20071024
  Transmission Date: 20080405
  Serious: Yes (Other)
  Sender: FDA-Public Use
  Company Number: A0689487A

PATIENT
  Age: 35 Year
  Sex: Female

DRUGS (1)
  1. ALLI [Suspect]
     Route: 048
     Dates: end: 20071008

REACTIONS (5)
  - ASTHENIA [None]
  - HAEMORRHAGE [None]
  - MENORRHAGIA [None]
  - MENSTRUAL DISORDER [None]
  - MENSTRUATION IRREGULAR [None]
